FAERS Safety Report 7783593-6 (Version None)
Quarter: 2011Q3

REPORT INFORMATION
  Report Type: 
  Country: None (occurrence: None)
  Receive Date: 20110928
  Receipt Date: 20110106
  Transmission Date: 20111222
  Serious: No
  Sender: FDA-Public Use
  Company Number: US-MYLANLABS-2010S1019420

PATIENT
  Age: 62 Year
  Sex: Male

DRUGS (3)
  1. FUROSEMIDE [Suspect]
     Indication: FLUID RETENTION
     Route: 048
     Dates: start: 20070101
  2. FUROSEMIDE [Suspect]
     Route: 048
  3. ASPIRIN [Concomitant]

REACTIONS (2)
  - PROSTATIC SPECIFIC ANTIGEN INCREASED [None]
  - HYPOACUSIS [None]
